FAERS Safety Report 15969445 (Version 12)
Quarter: 2020Q3

REPORT INFORMATION
  Report Type: Report from Study
  Country: US (occurrence: US)
  Receive Date: 20190215
  Receipt Date: 20200813
  Transmission Date: 20201102
  Serious: Yes (Other)
  Sender: FDA-Public Use
  Company Number: US-ACTELION-A-US2019-185912

PATIENT
  Sex: Female
  Weight: 50.34 kg

DRUGS (2)
  1. OPSUMIT [Suspect]
     Active Substance: MACITENTAN
     Indication: PULMONARY ARTERIAL HYPERTENSION
     Dosage: 10 MG, QD
     Route: 048
     Dates: start: 20140127
  2. UPTRAVI [Suspect]
     Active Substance: SELEXIPAG
     Indication: PULMONARY ARTERIAL HYPERTENSION
     Dosage: 1600 MCG, BID
     Route: 048
     Dates: start: 20160926

REACTIONS (20)
  - Liver disorder [Unknown]
  - Bronchitis [Unknown]
  - Clostridium difficile infection [Unknown]
  - Hepatic cirrhosis [Unknown]
  - Pulmonary arterial hypertension [Unknown]
  - Condition aggravated [Unknown]
  - Cerebral disorder [Unknown]
  - Oropharyngeal discomfort [Unknown]
  - Influenza like illness [Unknown]
  - Hypoacusis [Unknown]
  - Nasal congestion [Unknown]
  - Endoscopy abnormal [Unknown]
  - Illness [Unknown]
  - Platelet count decreased [Unknown]
  - Deafness [Unknown]
  - Fluid retention [Unknown]
  - Sinusitis [Unknown]
  - Headache [Unknown]
  - Neuralgia [Unknown]
  - Dyspnoea [Unknown]
